FAERS Safety Report 20482002 (Version 3)
Quarter: 2022Q1

REPORT INFORMATION
  Report Type: Report from Study
  Country: US (occurrence: US)
  Receive Date: 20220216
  Receipt Date: 20220317
  Transmission Date: 20220423
  Serious: Yes (Other)
  Sender: FDA-Public Use
  Company Number: US-Taiho Oncology Inc-EU-2022-00343

PATIENT
  Sex: Male
  Weight: 74.565 kg

DRUGS (19)
  1. LONSURF [Suspect]
     Active Substance: TIPIRACIL HYDROCHLORIDE\TRIFLURIDINE
     Indication: Rectosigmoid cancer
     Dosage: CYCLE 1
     Route: 048
     Dates: start: 20220111
  2. LONSURF [Suspect]
     Active Substance: TIPIRACIL HYDROCHLORIDE\TRIFLURIDINE
     Dosage: CYCLE UNKNOWN
     Route: 048
     Dates: start: 20220117
  3. LIPITOR [Concomitant]
     Active Substance: ATORVASTATIN CALCIUM
  4. COLCHICINE [Concomitant]
     Active Substance: COLCHICINE
     Dosage: 2 TABLETS AT FIRST SIGN, 1 TAB 1 HOUR LATER. REPEAT DAILY UNTIL GONE.
     Route: 048
  5. GABAPENTIN [Concomitant]
     Active Substance: GABAPENTIN
     Route: 048
  6. LOSARTAN [Concomitant]
     Active Substance: LOSARTAN
     Dosage: DECREASED DOSE FROM 50 MG TO 25 MG.
     Route: 048
     Dates: start: 20211214
  7. METFORMIN [Concomitant]
     Active Substance: METFORMIN HYDROCHLORIDE
     Route: 048
  8. MORPHINE [Concomitant]
     Active Substance: MORPHINE
     Indication: Pain
     Dosage: PRN
     Route: 048
  9. ONDANSETRON [Concomitant]
     Active Substance: ONDANSETRON
     Dosage: BID
     Route: 048
  10. ZOFRAN [Concomitant]
     Active Substance: ONDANSETRON HYDROCHLORIDE
     Indication: Nausea
     Dosage: TID/ PRN
     Route: 048
  11. ZOFRAN [Concomitant]
     Active Substance: ONDANSETRON HYDROCHLORIDE
     Indication: Vomiting
  12. OXYCODONE [Concomitant]
     Active Substance: OXYCODONE
     Indication: Pain
     Dosage: Q 6HR/PRN
     Route: 048
  13. PROCHLORPERAZINE [Concomitant]
     Active Substance: PROCHLORPERAZINE
     Route: 048
  14. SODIUM CHLORIDE [Concomitant]
     Active Substance: SODIUM CHLORIDE
     Dosage: MONDAY,WEDNESDAY AND FRIDAY
     Route: 048
  15. ASCORBIC ACID\IRON [Concomitant]
     Active Substance: ASCORBIC ACID\IRON
     Route: 048
  16. VITAMIN C [Concomitant]
     Active Substance: ASCORBIC ACID
     Route: 048
  17. BENADRYL [Concomitant]
     Active Substance: DIPHENHYDRAMINE HYDROCHLORIDE
     Dosage: PRN
  18. CALCIUM [Concomitant]
     Active Substance: CALCIUM
  19. PROBIOTICS NOS [Concomitant]
     Active Substance: PROBIOTICS NOS
     Dosage: DAILY.

REACTIONS (3)
  - Stoma site haemorrhage [Unknown]
  - Urinary tract infection [Not Recovered/Not Resolved]
  - Product dose omission in error [Unknown]
